FAERS Safety Report 9633420 (Version 2)
Quarter: 2014Q1

REPORT INFORMATION
  Report Type: Spontaneous
  Country: US (occurrence: US)
  Receive Date: 20131021
  Receipt Date: 20140117
  Transmission Date: 20141002
  Serious: Yes (Other)
  Sender: FDA-Public Use
  Company Number: US-BRISTOL-MYERS SQUIBB COMPANY-19397066

PATIENT
  Age: 80 Year
  Sex: Male
  Weight: 72.7 kg

DRUGS (1)
  1. YERVOY [Suspect]
     Indication: METASTATIC MALIGNANT MELANOMA
     Dosage: INJ?INF DTS:14JUN13,5JUL,26JUL13 220MG
     Route: 042
     Dates: start: 20130614

REACTIONS (3)
  - Malignant neoplasm progression [Unknown]
  - Hepatic enzyme increased [Unknown]
  - Blood bilirubin increased [Unknown]
